FAERS Safety Report 10048049 (Version 2)
Quarter: 2014Q2

REPORT INFORMATION
  Report Type: Spontaneous
  Country: RU (occurrence: RU)
  Receive Date: 20140331
  Receipt Date: 20140407
  Transmission Date: 20141212
  Serious: Yes (Other)
  Sender: FDA-Public Use
  Company Number: RU-PFIZER INC-2014081772

PATIENT
  Age: 27 Year
  Sex: Male

DRUGS (3)
  1. LYRICA [Suspect]
     Dosage: 1200 MG SINGLE DOSE (FOUR CAPSULES OF 300 MG)
     Route: 048
     Dates: start: 20140127, end: 20140127
  2. CARBAMAZEPINE [Concomitant]
     Indication: MENTAL DISORDER DUE TO A GENERAL MEDICAL CONDITION
     Dosage: 1200 MG, 1X/DAY
     Route: 048
     Dates: start: 2009
  3. CLOZAPINE [Concomitant]
     Indication: MENTAL DISORDER DUE TO A GENERAL MEDICAL CONDITION
     Dosage: 150 MG, 1X/DAY
     Route: 048
     Dates: start: 2009

REACTIONS (4)
  - Intentional overdose [Recovered/Resolved]
  - Drug abuse [Unknown]
  - Agitation [Recovered/Resolved]
  - Anxiety [Recovered/Resolved]
